FAERS Safety Report 5653265-2 (Version None)
Quarter: 2008Q1

REPORT INFORMATION
  Report Type: 
  Country: None (occurrence: None)
  Receive Date: 20080131
  Receipt Date: 20071018
  Transmission Date: 20080703
  Serious: No
  Sender: FDA-Public Use
  Company Number: US200710004528

PATIENT
  Age: 53 Year
  Sex: Female

DRUGS (8)
  1. BYETTA [Suspect]
     Indication: TYPE 2 DIABETES MELLITUS
     Dosage: 5 UG, 2/D, SUBCUTANEOUS
     Route: 058
     Dates: start: 20070501
  2. HYZAAR [Concomitant]
  3. METFORMIN HCL [Concomitant]
  4. STARLIX [Concomitant]
  5. PRECOSE [Concomitant]
  6. VITAMINS [Concomitant]
  7. ESTROVEN /02150801/ (BORON, CALCIUM, CIMICIFUGA RACEMOSA EXTRACT, FOLI [Concomitant]
  8. CAFFEINE CITRATE [Concomitant]

REACTIONS (3)
  - FRACTURE [None]
  - HOT FLUSH [None]
  - PAIN IN EXTREMITY [None]
